FAERS Safety Report 12328815 (Version 1)
Quarter: 2016Q2

REPORT INFORMATION
  Report Type: Spontaneous
  Country: US (occurrence: US)
  Receive Date: 20160503
  Receipt Date: 20160503
  Transmission Date: 20160815
  Serious: No
  Sender: FDA-Public Use
  Company Number: US-BEH-2015050948

PATIENT
  Sex: Male
  Weight: 75 kg

DRUGS (13)
  1. HIZENTRA [Suspect]
     Active Substance: HUMAN IMMUNOGLOBULIN G
     Indication: SELECTIVE IGG SUBCLASS DEFICIENCY
     Route: 058
  2. DIPHENHYDRAMINE. [Concomitant]
     Active Substance: DIPHENHYDRAMINE
     Dosage: UD
     Route: 048
  3. SYMBICORT HFA [Concomitant]
     Indication: ASTHMA
     Dosage: 1 PUFF, 160-4.5 MCG
     Route: 055
  4. NASONEX [Concomitant]
     Active Substance: MOMETASONE FUROATE
     Dosage: 1 SPRAY PRN
     Route: 045
  5. ACETAMINOPHEN. [Concomitant]
     Active Substance: ACETAMINOPHEN
     Dosage: UD
     Route: 048
  6. EPIPEN [Concomitant]
     Active Substance: EPINEPHRINE
     Indication: ANAPHYLACTIC REACTION
     Route: 030
  7. HIZENTRA [Suspect]
     Active Substance: HUMAN IMMUNOGLOBULIN G
     Indication: SELECTIVE IGG SUBCLASS DEFICIENCY
     Route: 058
  8. LIDOCAINE 4% [Concomitant]
     Active Substance: LIDOCAINE
     Route: 061
  9. LIDOCAINE/PRILOCAINE [Concomitant]
     Dosage: 2.5% UD
     Route: 061
  10. IBUPROFEN. [Concomitant]
     Active Substance: IBUPROFEN
     Indication: PAIN
     Route: 048
  11. SYMBICORT HFA [Concomitant]
     Indication: DYSPNOEA
     Dosage: 1 PUFF, 160-4.5 MCG
     Route: 055
  12. PROAIR HFA [Concomitant]
     Active Substance: ALBUTEROL SULFATE
     Dosage: 2 PUFFS Q2-4 HP
     Route: 055
  13. HIZENTRA [Suspect]
     Active Substance: HUMAN IMMUNOGLOBULIN G
     Indication: IMMUNODEFICIENCY COMMON VARIABLE
     Route: 058

REACTIONS (4)
  - Headache [Unknown]
  - Sinusitis [Unknown]
  - Back pain [Unknown]
  - Pyrexia [Unknown]
